FAERS Safety Report 8566294-6 (Version None)
Quarter: 2012Q3

REPORT INFORMATION
  Report Type: 
  Country: None (occurrence: None)
  Receive Date: 20120803
  Receipt Date: 20110818
  Transmission Date: 20120928
  Serious: No
  Sender: FDA-Public Use
  Company Number: US-ABBOTT-11P-163-0847633-00

PATIENT
  Sex: Male
  Weight: 101.24 kg

DRUGS (11)
  1. DILANTIN [Concomitant]
     Indication: PRODUCT USED FOR UNKNOWN INDICATION
     Dosage: NOT REPORTED
  2. METOPROLOL TARTRATE [Concomitant]
     Indication: PRODUCT USED FOR UNKNOWN INDICATION
  3. NIASPAN [Suspect]
     Indication: PRODUCT USED FOR UNKNOWN INDICATION
     Dosage: 500 MG AT BEDTIME
     Dates: start: 20100301
  4. FENOFIBRATE [Concomitant]
     Indication: PRODUCT USED FOR UNKNOWN INDICATION
     Dosage: 160 MG DAILY
  5. PHENOBARBITAL TAB [Concomitant]
     Indication: PRODUCT USED FOR UNKNOWN INDICATION
  6. M.V.I. [Concomitant]
     Indication: PRODUCT USED FOR UNKNOWN INDICATION
     Dosage: NOT REPORTED
  7. LIPITOR [Concomitant]
     Indication: PRODUCT USED FOR UNKNOWN INDICATION
     Dosage: 80 MG DAILY
  8. ASPIRIN [Concomitant]
     Indication: PRODUCT USED FOR UNKNOWN INDICATION
     Dosage: 81 MG DAILY
  9. CALCIUM [Concomitant]
     Indication: PRODUCT USED FOR UNKNOWN INDICATION
     Dosage: 1000 MG DAILY
  10. FISH OIL [Concomitant]
     Indication: PRODUCT USED FOR UNKNOWN INDICATION
     Dosage: 1700 MG DAILY
  11. PLAVIX [Concomitant]
     Indication: PRODUCT USED FOR UNKNOWN INDICATION
     Dosage: 75 MG

REACTIONS (3)
  - FLUSHING [None]
  - FEELING HOT [None]
  - PARAESTHESIA [None]
